FAERS Safety Report 5197575-4 (Version None)
Quarter: 2006Q4

REPORT INFORMATION
  Report Type: 
  Country: None (occurrence: None)
  Receive Date: 20061228
  Receipt Date: 20061202
  Transmission Date: 20070319
  Serious: Yes (Hospitalization)
  Sender: FDA-Public Use
  Company Number: 2006SP007561

PATIENT
  Age: 45 Year
  Sex: Male
  Weight: 81.4 kg

DRUGS (3)
  1. PEG-INTRON [Suspect]
     Indication: HEPATITIS C
     Dosage: 135 MCG; QW; SC
     Route: 058
     Dates: start: 20061018
  2. REBETOL [Suspect]
     Indication: HEPATITIS C
     Dosage: 1000 MG; QD; PO
     Route: 048
     Dates: start: 20061018
  3. CIPRAMIL [Concomitant]

REACTIONS (7)
  - ABASIA [None]
  - CONFUSIONAL STATE [None]
  - DIZZINESS [None]
  - DYSPNOEA [None]
  - RESTLESSNESS [None]
  - SEROTONIN SYNDROME [None]
  - TARDIVE DYSKINESIA [None]
